FAERS Safety Report 9915257 (Version 1)
Quarter: 2014Q1

REPORT INFORMATION
  Report Type: Report from Study
  Country: ES (occurrence: ES)
  Receive Date: 20140221
  Receipt Date: 20140221
  Transmission Date: 20141002
  Serious: Yes (Hospitalization, Other)
  Sender: FDA-Public Use
  Company Number: ES-ASTRAZENECA-2014SE10810

PATIENT
  Age: 68 Year
  Sex: Female

DRUGS (7)
  1. STUDY PROCEDURE [Suspect]
     Indication: ACUTE CORONARY SYNDROME
     Route: 065
  2. TICAGRELOR [Suspect]
     Indication: ACUTE CORONARY SYNDROME
     Route: 048
     Dates: start: 20130906
  3. ACETYLSALICYLIC ACID [Suspect]
     Indication: ACUTE CORONARY SYNDROME
     Route: 048
     Dates: start: 20130906
  4. ATORVASTATIN [Concomitant]
  5. BISOPROLOL [Concomitant]
  6. ENALAPRIL [Concomitant]
  7. HIDROFEROL [Concomitant]
     Dosage: 1/SEM

REACTIONS (1)
  - Angina unstable [Not Recovered/Not Resolved]
